FAERS Safety Report 20484421 (Version 1)
Quarter: 2022Q1

REPORT INFORMATION
  Report Type: Spontaneous
  Country: US (occurrence: None)
  Receive Date: 20220216
  Receipt Date: 20220216
  Transmission Date: 20220424
  Serious: No
  Sender: FDA-Public Use
  Company Number: None

PATIENT
  Sex: Female

DRUGS (2)
  1. VERZENIO [Suspect]
     Active Substance: ABEMACICLIB
     Indication: Breast cancer female
     Dosage: FREQUENCY : TWICE A DAY;?
     Route: 048
     Dates: start: 20210623
  2. VERZENIO [Suspect]
     Active Substance: ABEMACICLIB
     Indication: Oestrogen receptor assay positive

REACTIONS (3)
  - Platelet count decreased [None]
  - Red blood cell count decreased [None]
  - White blood cell count decreased [None]
